FAERS Safety Report 9068389 (Version 1)
Quarter: 2013Q1

REPORT INFORMATION
  Report Type: Spontaneous
  Country: US (occurrence: None)
  Receive Date: 20130212
  Receipt Date: 20130212
  Transmission Date: 20140127
  Serious: Yes (Life-Threatening)
  Sender: FDA-Public Use
  Company Number: None

PATIENT
  Age: 70 Year
  Sex: Female
  Weight: 89.3 kg

DRUGS (1)
  1. MOXIFLOXACIN [Suspect]

REACTIONS (3)
  - Ventricular tachycardia [None]
  - Torsade de pointes [None]
  - Chest pain [None]
